FAERS Safety Report 21366926 (Version 3)
Quarter: 2022Q4

REPORT INFORMATION
  Report Type: Spontaneous
  Country: US (occurrence: US)
  Receive Date: 20220923
  Receipt Date: 20221209
  Transmission Date: 20230113
  Serious: No
  Sender: FDA-Public Use
  Company Number: US-SA-SAC20220915000983

PATIENT
  Age: 55 Year
  Sex: Female
  Weight: 68.038 kg

DRUGS (5)
  1. DUPIXENT [Suspect]
     Active Substance: DUPILUMAB
     Indication: Dermatitis atopic
     Dosage: 600 MG, 1X
     Route: 058
     Dates: start: 20220809, end: 20220809
  2. DUPIXENT [Suspect]
     Active Substance: DUPILUMAB
     Dosage: 300 MG, QOW
     Route: 058
     Dates: start: 20220823, end: 20220912
  3. MUPIROCIN [Concomitant]
     Active Substance: MUPIROCIN
     Indication: Eczema
     Route: 061
     Dates: start: 20220809, end: 20220809
  4. TACROLIMUS [Concomitant]
     Active Substance: TACROLIMUS
     Indication: Eczema
     Route: 061
     Dates: start: 20220524, end: 20220809
  5. CLOBETASOL [Concomitant]
     Active Substance: CLOBETASOL
     Indication: Eczema
     Route: 061
     Dates: start: 20220421, end: 20220809

REACTIONS (4)
  - Dermatitis atopic [Unknown]
  - Inflammation [Recovered/Resolved]
  - Condition aggravated [Recovered/Resolved]
  - Drug ineffective [Unknown]

NARRATIVE: CASE EVENT DATE: 20220823
